FAERS Safety Report 7621158-7 (Version None)
Quarter: 2011Q3

REPORT INFORMATION
  Report Type: 
  Country: None (occurrence: None)
  Receive Date: 20110719
  Receipt Date: 20110714
  Transmission Date: 20111222
  Serious: Yes (Death, Life-Threatening, Hospitalization, Other)
  Sender: FDA-Public Use
  Company Number: PHHY2011BR63718

PATIENT
  Sex: Female

DRUGS (7)
  1. CARVEDILOL [Concomitant]
     Indication: MITRAL VALVE DISEASE
     Dosage: 1 DF, Q12H
     Dates: start: 20020101
  2. DIOVAN [Suspect]
     Dosage: 2 DF (320MG OF VALS), Q12H
     Route: 048
  3. DIOVAN [Suspect]
     Dosage: 1 DF (320 MG OF VALS), PRN
     Route: 048
  4. DIOVAN [Suspect]
     Dosage: 1 DF (160MG OF VALS), Q12H
     Route: 048
     Dates: start: 20050101
  5. DIOVAN [Suspect]
     Indication: HYPERTENSION
     Dosage: 1 DF (80MG OF VALS), Q12H
     Route: 048
     Dates: start: 20030101, end: 20050101
  6. SIMVASTATIN [Concomitant]
     Indication: BLOOD CHOLESTEROL INCREASED
     Dosage: 1 DF A DAY
     Route: 048
     Dates: start: 20110613
  7. ASPIRIN [Concomitant]
     Indication: ANTICOAGULANT THERAPY
     Dosage: 2 DF A DAY
     Route: 048
     Dates: start: 20020101

REACTIONS (17)
  - SWELLING [None]
  - HYPOKINESIA [None]
  - PNEUMONIA [None]
  - FEAR [None]
  - INFECTION [None]
  - SEPSIS [None]
  - NAUSEA [None]
  - URINARY TRACT INFECTION [None]
  - CARDIO-RESPIRATORY ARREST [None]
  - HALLUCINATION [None]
  - INSOMNIA [None]
  - CARDIAC FUNCTION TEST ABNORMAL [None]
  - CARDIAC FAILURE CONGESTIVE [None]
  - BLOOD PRESSURE FLUCTUATION [None]
  - DEATH [None]
  - FEAR OF DEATH [None]
  - DIZZINESS [None]
